FAERS Safety Report 6700645-X (Version None)
Quarter: 2010Q2

REPORT INFORMATION
  Report Type: 
  Country: None (occurrence: None)
  Receive Date: 20100428
  Receipt Date: 20100414
  Transmission Date: 20101027
  Serious: No
  Sender: FDA-Public Use
  Company Number: US-B.I. PHARMACEUTICALS,INC./RIDGEFIELD-2010-BP-04360BP

PATIENT
  Sex: Male

DRUGS (5)
  1. SPIRIVA [Suspect]
     Indication: CHRONIC OBSTRUCTIVE PULMONARY DISEASE
     Dosage: 18 MCG
     Route: 055
     Dates: start: 20100412, end: 20100414
  2. NITROGLYCERIN [Concomitant]
     Indication: CARDIOMEGALY
  3. NITROGLYCERIN [Concomitant]
     Indication: CARDIAC DISORDER
  4. INSULIN [Concomitant]
     Indication: DIABETES MELLITUS
  5. MEDICATION NOT FURTHER SPECIFIED [Concomitant]
     Indication: PROSTATOMEGALY

REACTIONS (3)
  - CONFUSIONAL STATE [None]
  - NERVOUSNESS [None]
  - PRURITUS [None]
